FAERS Safety Report 23859983 (Version 1)
Quarter: 2024Q2

REPORT INFORMATION
  Report Type: Spontaneous
  Country: US (occurrence: US)
  Receive Date: 20240515
  Receipt Date: 20240515
  Transmission Date: 20240716
  Serious: Yes (Other)
  Sender: FDA-Public Use
  Company Number: US-SA-2024SA136955

PATIENT
  Age: 36 Year
  Sex: Female

DRUGS (13)
  1. AMBIEN [Suspect]
     Active Substance: ZOLPIDEM TARTRATE
  2. DEXAMETHASONE SODIUM PHOSPHATE [Suspect]
     Active Substance: DEXAMETHASONE PHOSPHATE\DEXAMETHASONE SODIUM PHOSPHATE
  3. TRAMADOL HYDROCHLORIDE [Suspect]
     Active Substance: TRAMADOL HYDROCHLORIDE
  4. ALPRAZOLAM [Suspect]
     Active Substance: ALPRAZOLAM
  5. TIZANIDINE [Suspect]
     Active Substance: TIZANIDINE
     Dosage: UNK
  6. XYWAV [Suspect]
     Active Substance: CALCIUM OXYBATE\MAGNESIUM OXYBATE\POTASSIUM OXYBATE\SODIUM OXYBATE
     Indication: Hypersomnia
     Dosage: 4 G, BID
  7. XYWAV [Suspect]
     Active Substance: CALCIUM OXYBATE\MAGNESIUM OXYBATE\POTASSIUM OXYBATE\SODIUM OXYBATE
     Dosage: 2.25 G, BID
  8. WAKIX [Suspect]
     Active Substance: PITOLISANT HYDROCHLORIDE
     Dosage: 17.8 MG
     Dates: start: 20240301
  9. WAKIX [Suspect]
     Active Substance: PITOLISANT HYDROCHLORIDE
     Dosage: 4.45 MG
     Dates: start: 20240301
  10. BENADRYL ALLERGY [Concomitant]
     Active Substance: DIPHENHYDRAMINE HYDROCHLORIDE
     Dosage: UNK
     Dates: start: 19980318
  11. ROBITUSSIN COUGH AND CHEST CONGESTION DM [Concomitant]
     Active Substance: DEXTROMETHORPHAN HYDROBROMIDE\GUAIFENESIN
     Dosage: UNK
     Dates: start: 20220101
  12. TRAZODONE [Concomitant]
     Active Substance: TRAZODONE HYDROCHLORIDE
     Dosage: UNK
     Dates: start: 20230101
  13. ALBUTEROL SULFATE [Concomitant]
     Active Substance: ALBUTEROL SULFATE
     Dosage: UNK
     Dates: start: 19980101

REACTIONS (23)
  - Suicidal ideation [Unknown]
  - Hallucination [Unknown]
  - Depression [Unknown]
  - Panic attack [Unknown]
  - Hangover [Unknown]
  - Migraine [Unknown]
  - Nightmare [Unknown]
  - Heart rate decreased [Unknown]
  - Sinus disorder [Unknown]
  - Illness [Unknown]
  - Brain fog [Recovering/Resolving]
  - Tremor [Unknown]
  - Dysmenorrhoea [Unknown]
  - Nausea [Unknown]
  - Feeling drunk [Unknown]
  - Abdominal pain upper [Unknown]
  - Vomiting [Unknown]
  - Diplopia [Unknown]
  - Withdrawal syndrome [Unknown]
  - Arthralgia [Unknown]
  - Dizziness [Unknown]
  - Heart rate increased [Unknown]
  - Intentional product misuse [Unknown]

NARRATIVE: CASE EVENT DATE: 20240301
